FAERS Safety Report 15743919 (Version 1)
Quarter: 2018Q4

REPORT INFORMATION
  Report Type: Spontaneous
  Country: US (occurrence: US)
  Receive Date: 20181204
  Receipt Date: 20181204
  Transmission Date: 20190205
  Serious: Yes (Life-Threatening, Hospitalization)
  Sender: FDA-Public Use
  Company Number: None

PATIENT
  Age: 65 Year
  Sex: Male
  Weight: 80.74 kg

DRUGS (12)
  1. WEST WHEAT GRASS [Concomitant]
     Active Substance: PASCOPYRUM SMITHII POLLEN
  2. GARLIC OIL [Concomitant]
     Active Substance: GARLIC OIL
  3. HCL [Concomitant]
  4. LISENOPRIL [Concomitant]
     Active Substance: LISINOPRIL
  5. MILK THISTLE [Concomitant]
     Active Substance: DIETARY SUPPLEMENT\HERBALS\MILK THISTLE
  6. ATIVAN [Suspect]
     Active Substance: LORAZEPAM
     Indication: PNEUMONIA
     Route: 058
  7. COD LIVER OIL [Concomitant]
     Active Substance: COD LIVER OIL
  8. POTASSIUM [Concomitant]
     Active Substance: POTASSIUM
  9. FLAXSEED [Concomitant]
     Active Substance: FLAX SEED
  10. MSM [Concomitant]
     Active Substance: DIMETHYL SULFONE
  11. ACSI BERRIES [Concomitant]
  12. SOVEREIGN SILVER [Concomitant]

REACTIONS (2)
  - Overdose [None]
  - Coma [None]

NARRATIVE: CASE EVENT DATE: 1999
